FAERS Safety Report 9513669 (Version 2)
Quarter: 2013Q4

REPORT INFORMATION
  Report Type: Spontaneous
  Country: US (occurrence: US)
  Receive Date: 20130910
  Receipt Date: 20131009
  Transmission Date: 20140711
  Serious: No
  Sender: FDA-Public Use
  Company Number: US-009507513-1309USA004051

PATIENT
  Age: 66 Year
  Sex: Female
  Weight: 63.49 kg

DRUGS (3)
  1. CLARITIN [Suspect]
     Indication: UPPER-AIRWAY COUGH SYNDROME
     Dosage: 10 MG, QD
     Route: 048
     Dates: start: 20130902
  2. CLARITIN [Suspect]
     Indication: SNEEZING
  3. CLARITIN [Suspect]
     Indication: ASTHMA

REACTIONS (4)
  - Asthma [Recovered/Resolved]
  - Pruritus [Recovered/Resolved]
  - Dizziness [Recovered/Resolved]
  - Headache [Recovered/Resolved]
